FAERS Safety Report 7583323-7 (Version None)
Quarter: 2011Q2

REPORT INFORMATION
  Report Type: 
  Country: None (occurrence: None)
  Receive Date: 20110623
  Receipt Date: 20100302
  Transmission Date: 20111010
  Serious: Yes (Hospitalization)
  Sender: FDA-Public Use
  Company Number: 2009-190801-NL

PATIENT
  Age: 34 Year
  Sex: Female
  Weight: 92.5 kg

DRUGS (7)
  1. ASACOL [Concomitant]
  2. LEXAPRO [Concomitant]
  3. PROPOXYPHENE NAPSYLATE W/ ACETAMINOPHEN [Concomitant]
  4. NUVARING [Suspect]
     Indication: CONTRACEPTION
     Dates: start: 20051201, end: 20060201
  5. PREDNISONE [Concomitant]
  6. PROTONIX [Concomitant]
  7. ZITHROMAX [Concomitant]

REACTIONS (13)
  - DEEP VEIN THROMBOSIS [None]
  - COLITIS ULCERATIVE [None]
  - BACK PAIN [None]
  - NEPHROLITHIASIS [None]
  - ATELECTASIS [None]
  - SEBORRHOEIC KERATOSIS [None]
  - PULMONARY EMBOLISM [None]
  - ANAEMIA [None]
  - BLOOD MAGNESIUM DECREASED [None]
  - CALCINOSIS [None]
  - SMALL INTESTINAL OBSTRUCTION [None]
  - CONVULSION [None]
  - THROMBOSIS [None]
